FAERS Safety Report 9962258 (Version 1)
Quarter: 2014Q1

REPORT INFORMATION
  Report Type: Report from Study
  Country: US (occurrence: US)
  Receive Date: 20140305
  Receipt Date: 20140305
  Transmission Date: 20141002
  Serious: No
  Sender: FDA-Public Use
  Company Number: US-ABBVIE-13P-163-1114214-00

PATIENT
  Age: 46 Year
  Sex: Female

DRUGS (8)
  1. HUMIRA [Suspect]
     Indication: CROHN^S DISEASE
     Dosage: LOADING DOSE
     Dates: start: 20130613
  2. HUMIRA [Suspect]
     Dosage: SECOND LOADING DOSE
     Dates: start: 20130627
  3. PREDNISONE [Concomitant]
     Indication: PRODUCT USED FOR UNKNOWN INDICATION
     Dosage: 30 MG DAILY
  4. WARFARIN [Concomitant]
     Indication: ANTICOAGULANT THERAPY
  5. WARFARIN [Concomitant]
     Indication: DEEP VEIN THROMBOSIS
  6. CLARITIN [Concomitant]
     Indication: SEASONAL ALLERGY
     Dosage: ONE DAILY
  7. ZANTAC [Concomitant]
     Indication: PRODUCT USED FOR UNKNOWN INDICATION
  8. GUAFENSIN [Concomitant]
     Indication: PRODUCT USED FOR UNKNOWN INDICATION

REACTIONS (4)
  - Sensory disturbance [Not Recovered/Not Resolved]
  - Abdominal distension [Not Recovered/Not Resolved]
  - Injection site pain [Not Recovered/Not Resolved]
  - Muscular weakness [Not Recovered/Not Resolved]
